FAERS Safety Report 4411266-6 (Version None)
Quarter: 2004Q3

REPORT INFORMATION
  Report Type: 
  Country: None (occurrence: None)
  Receive Date: 20040727
  Receipt Date: 20040713
  Transmission Date: 20050211
  Serious: Yes (Hospitalization)
  Sender: FDA-Public Use
  Company Number: 2004041198

PATIENT
  Age: 83 Year
  Sex: Female

DRUGS (2)
  1. UNASYN [Suspect]
     Indication: PYREXIA
     Dosage: 6 GRAM (1 D), INTRAVENOUS
     Route: 042
     Dates: start: 20040505, end: 20040603
  2. SULPERAZON (CEFOPERAZONE, SULBACTAM) [Suspect]
     Indication: STAPHYLOCOCCAL INFECTION
     Dosage: 2 GRAM (1 D), INTRAVENOUS
     Route: 042
     Dates: start: 20040501, end: 20040526

REACTIONS (10)
  - EOSINOPHIL COUNT INCREASED [None]
  - ERYTHEMA [None]
  - KLEBSIELLA INFECTION [None]
  - PANCYTOPENIA [None]
  - PNEUMONIA ASPIRATION [None]
  - PRURITUS [None]
  - PYREXIA [None]
  - SPUTUM CULTURE POSITIVE [None]
  - STAPHYLOCOCCAL INFECTION [None]
  - VOMITING [None]
